FAERS Safety Report 8997834 (Version 1)
Quarter: 2013Q1

REPORT INFORMATION
  Report Type: Spontaneous
  Country: US (occurrence: US)
  Receive Date: 20130104
  Receipt Date: 20130104
  Transmission Date: 20140127
  Serious: Yes (Hospitalization)
  Sender: FDA-Public Use
  Company Number: US-GLAXOSMITHKLINE-A1007142A

PATIENT
  Age: 48 Year
  Sex: Male

DRUGS (1)
  1. LOVAZA [Suspect]
     Indication: ARTERIAL DISORDER
     Dosage: 1G UNKNOWN
     Route: 065
     Dates: start: 20111119

REACTIONS (2)
  - Intracardiac thrombus [Unknown]
  - Thrombosis [Unknown]
